FAERS Safety Report 22235251 (Version 1)
Quarter: 2023Q2

REPORT INFORMATION
  Report Type: Spontaneous
  Country: TW (occurrence: TW)
  Receive Date: 20230420
  Receipt Date: 20230420
  Transmission Date: 20230721
  Serious: Yes (Other)
  Sender: FDA-Public Use
  Company Number: TW-MYLANLABS-2023M1041729

PATIENT
  Age: 18 Year
  Sex: Female

DRUGS (20)
  1. SERTRALINE [Suspect]
     Active Substance: SERTRALINE HYDROCHLORIDE
     Indication: Obsessive-compulsive disorder
     Dosage: 200 MILLIGRAM, QD
     Route: 065
  2. SERTRALINE [Suspect]
     Active Substance: SERTRALINE HYDROCHLORIDE
     Indication: Antidepressant therapy
  3. VENLAFAXINE [Suspect]
     Active Substance: VENLAFAXINE HYDROCHLORIDE
     Indication: Obsessive-compulsive disorder
     Dosage: 225 MILLIGRAM, QD (RECEIVED FOR MORE THAN SIX WEEKS)
     Route: 065
  4. VENLAFAXINE [Suspect]
     Active Substance: VENLAFAXINE HYDROCHLORIDE
     Indication: Antidepressant therapy
  5. PAROXETINE [Suspect]
     Active Substance: PAROXETINE
     Indication: Obsessive-compulsive disorder
     Dosage: 60 MILLIGRAM, QD
     Route: 065
  6. PAROXETINE [Suspect]
     Active Substance: PAROXETINE
     Indication: Antidepressant therapy
  7. ESCITALOPRAM [Suspect]
     Active Substance: ESCITALOPRAM OXALATE
     Indication: Obsessive-compulsive disorder
     Dosage: 60 MILLIGRAM, QD
     Route: 065
  8. ESCITALOPRAM [Suspect]
     Active Substance: ESCITALOPRAM OXALATE
     Indication: Antidepressant therapy
  9. FLUOXETINE [Suspect]
     Active Substance: FLUOXETINE HYDROCHLORIDE
     Indication: Obsessive-compulsive disorder
     Dosage: 60 MILLIGRAM, QD
     Route: 065
  10. FLUOXETINE [Suspect]
     Active Substance: FLUOXETINE HYDROCHLORIDE
     Indication: Antidepressant therapy
  11. SULPIRIDE [Suspect]
     Active Substance: SULPIRIDE
     Indication: Obsessive-compulsive disorder
     Dosage: 400 MILLIGRAM, QD
     Route: 065
  12. SULPIRIDE [Suspect]
     Active Substance: SULPIRIDE
     Indication: Antipsychotic therapy
  13. DULOXETINE [Suspect]
     Active Substance: DULOXETINE
     Indication: Obsessive-compulsive disorder
     Dosage: 90 MILLIGRAM, QD
     Route: 065
  14. DULOXETINE [Suspect]
     Active Substance: DULOXETINE
     Indication: Antidepressant therapy
  15. ARIPIPRAZOLE [Suspect]
     Active Substance: ARIPIPRAZOLE
     Indication: Obsessive-compulsive disorder
     Dosage: 15 MILLIGRAM, QD
     Route: 065
  16. ARIPIPRAZOLE [Suspect]
     Active Substance: ARIPIPRAZOLE
     Indication: Antipsychotic therapy
  17. BUPROPION [Suspect]
     Active Substance: BUPROPION
     Indication: Obsessive-compulsive disorder
     Dosage: 300 MILLIGRAM, QD (RECEIVED FOR MORE THAN SIX WEEKS)
     Route: 065
  18. BUPROPION [Suspect]
     Active Substance: BUPROPION
     Indication: Antidepressant therapy
  19. RISPERIDONE [Suspect]
     Active Substance: RISPERIDONE
     Indication: Obsessive-compulsive disorder
     Dosage: 6 MILLIGRAM, QD (RECEIVED FOR MORE THAN SIX WEEKS)
     Route: 065
  20. RISPERIDONE [Suspect]
     Active Substance: RISPERIDONE
     Indication: Antipsychotic therapy

REACTIONS (1)
  - Drug ineffective [Unknown]
